FAERS Safety Report 14624681 (Version 2)
Quarter: 2019Q1

REPORT INFORMATION
  Report Type: Spontaneous
  Country: US (occurrence: US)
  Receive Date: 20180312
  Receipt Date: 20190108
  Transmission Date: 20190417
  Serious: No
  Sender: FDA-Public Use
  Company Number: US-PFIZER INC-2018094519

PATIENT
  Sex: Male
  Weight: 112 kg

DRUGS (1)
  1. NORVASC [Suspect]
     Active Substance: AMLODIPINE BESYLATE
     Dosage: UNK

REACTIONS (4)
  - Urticaria [Unknown]
  - Dermatitis [Unknown]
  - Rash [Unknown]
  - Drug hypersensitivity [Unknown]
